FAERS Safety Report 7372635-8 (Version None)
Quarter: 2011Q1

REPORT INFORMATION
  Report Type: 
  Country: None (occurrence: None)
  Receive Date: 20110324
  Receipt Date: 20110225
  Transmission Date: 20110831
  Serious: No
  Sender: FDA-Public Use
  Company Number: US-B.I. PHARMACEUTICALS,INC./RIDGEFIELD-2011-BP-07058BP

PATIENT
  Sex: Male

DRUGS (8)
  1. PRADAXA [Suspect]
     Indication: ATRIAL FIBRILLATION
     Dosage: 300 MG
     Route: 048
     Dates: start: 20101207
  2. FLUDROCORTISONE [Concomitant]
     Dosage: 0.1 MG
  3. CARVEDILOL [Concomitant]
     Indication: ATRIAL FIBRILLATION
     Dosage: 25 MG
  4. LIPITOR [Concomitant]
     Indication: BLOOD CHOLESTEROL INCREASED
     Dosage: 10 MG
  5. LOSARTAN POTASSIUM [Concomitant]
     Indication: HYPERTENSION
     Dosage: 50 MG
  6. ASPIRIN [Concomitant]
     Indication: ANTICOAGULANT THERAPY
     Dosage: 81 MG
  7. TEST-CHRYSIN HRT [Concomitant]
     Indication: HORMONE REPLACEMENT THERAPY
     Dosage: 0.25 NR
  8. THYROID TAB [Concomitant]
     Indication: THYROID DISORDER
     Dosage: 60 MG

REACTIONS (4)
  - DISORIENTATION [None]
  - FALL [None]
  - BALANCE DISORDER [None]
  - DIZZINESS [None]
